FAERS Safety Report 9567270 (Version 1)
Quarter: 2013Q3

REPORT INFORMATION
  Report Type: Spontaneous
  Country: US (occurrence: US)
  Receive Date: 20130930
  Receipt Date: 20130930
  Transmission Date: 20140515
  Serious: No
  Sender: FDA-Public Use
  Company Number: US-AMGEN-USASP2012062693

PATIENT
  Age: 34 Year
  Sex: Female

DRUGS (1)
  1. ENBREL [Suspect]
     Indication: PSORIASIS
     Dosage: 50 MG, QWK
     Dates: start: 20120309, end: 20120405

REACTIONS (4)
  - Pruritus generalised [Recovered/Resolved]
  - Injection site mass [Recovered/Resolved]
  - Staphylococcal infection [Recovered/Resolved]
  - Injection site swelling [Recovered/Resolved]
